FAERS Safety Report 6370424-4 (Version None)
Quarter: 2009Q3

REPORT INFORMATION
  Report Type: 
  Country: None (occurrence: None)
  Receive Date: 20090923
  Receipt Date: 20090914
  Transmission Date: 20100115
  Serious: Yes (Hospitalization)
  Sender: FDA-Public Use
  Company Number: US-NOVOPROD-291659

PATIENT
  Sex: Female
  Weight: 70.295 kg

DRUGS (4)
  1. LEVEMIR [Suspect]
     Indication: INSULIN-REQUIRING TYPE 2 DIABETES MELLITUS
     Dosage: 100 IU, QD
     Route: 058
     Dates: start: 20080101
  2. ENALAPRIL                          /00574902/ [Concomitant]
     Indication: HYPERTENSION
     Route: 048
  3. ASPIRIN [Concomitant]
     Indication: PROPHYLAXIS
     Dosage: 81 MG, QD
     Route: 048
     Dates: end: 20090201
  4. ASPIRIN [Concomitant]
     Dosage: 81 MG, BID
     Route: 048
     Dates: start: 20090201

REACTIONS (1)
  - CEREBROVASCULAR ACCIDENT [None]
